FAERS Safety Report 4565538-5 (Version None)
Quarter: 2005Q1

REPORT INFORMATION
  Report Type: 
  Country: None (occurrence: None)
  Receive Date: 20050125
  Receipt Date: 20050125
  Transmission Date: 20050727
  Serious: Yes (Death)
  Sender: FDA-Public Use
  Company Number: None

PATIENT
  Age: 37 Year
  Sex: Female
  Weight: 47.6277 kg

DRUGS (1)
  1. OXYCONTIN [Suspect]
     Dosage: 2       PER DAY    ORAL
     Route: 048

REACTIONS (1)
  - OVERDOSE [None]
